FAERS Safety Report 5847905-2 (Version None)
Quarter: 2008Q3

REPORT INFORMATION
  Report Type: 
  Country: None (occurrence: None)
  Receive Date: 20080818
  Receipt Date: 20080812
  Transmission Date: 20090109
  Serious: Yes (Death, Hospitalization)
  Sender: FDA-Public Use
  Company Number: US-CELGENEUS-163-21880-08070547

PATIENT
  Sex: Female

DRUGS (3)
  1. REVLIMID [Suspect]
     Indication: MULTIPLE MYELOMA
     Route: 048
     Dates: start: 20080121, end: 20080601
  2. REVLIMID [Suspect]
     Route: 048
     Dates: start: 20071108, end: 20071101
  3. REVLIMID [Suspect]
     Route: 048
     Dates: start: 20070816, end: 20070901

REACTIONS (6)
  - CARDIAC DISORDER [None]
  - DISEASE PROGRESSION [None]
  - FALL [None]
  - INJURY [None]
  - MULTIPLE MYELOMA [None]
  - RENAL FAILURE [None]
